FAERS Safety Report 6181452-6 (Version None)
Quarter: 2009Q2

REPORT INFORMATION
  Report Type: 
  Country: None (occurrence: None)
  Receive Date: 20090506
  Receipt Date: 20090430
  Transmission Date: 20091009
  Serious: Yes (Hospitalization, Other)
  Sender: FDA-Public Use
  Company Number: US-ASTRAZENECA-2009UW11136

PATIENT
  Sex: Male

DRUGS (1)
  1. CASODEX [Suspect]
     Route: 048

REACTIONS (2)
  - PRIAPISM [None]
  - SICKLE CELL ANAEMIA WITH CRISIS [None]
